FAERS Safety Report 7620238-X (Version None)
Quarter: 2011Q3

REPORT INFORMATION
  Report Type: 
  Country: None (occurrence: None)
  Receive Date: 20110719
  Receipt Date: 20110706
  Transmission Date: 20111222
  Serious: Yes (Other)
  Sender: FDA-Public Use
  Company Number: PHHY2011JP58641

PATIENT
  Age: 44 Year
  Sex: Female
  Weight: 48 kg

DRUGS (2)
  1. VOLTAREN [Suspect]
     Dosage: UNK UKN, UNK
     Route: 048
  2. LOXOPROFEN [Concomitant]
     Dosage: UNK UKN, UNK

REACTIONS (4)
  - HYPOTHYROIDISM [None]
  - TRI-IODOTHYRONINE FREE INCREASED [None]
  - BLOOD THYROID STIMULATING HORMONE INCREASED [None]
  - THYROXINE FREE INCREASED [None]
